FAERS Safety Report 7275515-1 (Version None)
Quarter: 2011Q1

REPORT INFORMATION
  Report Type: 
  Country: None (occurrence: None)
  Receive Date: 20110204
  Receipt Date: 20110125
  Transmission Date: 20110831
  Serious: Yes (Other)
  Sender: FDA-Public Use
  Company Number: BH-JNJFOC-20110107500

PATIENT
  Age: 57 Year
  Sex: Male

DRUGS (2)
  1. INFLIXIMAB, RECOMBINANT [Suspect]
     Indication: PSORIASIS
     Dosage: FOR 2 YEARS
     Route: 042
  2. INFLIXIMAB, RECOMBINANT [Suspect]
     Indication: PSORIATIC ARTHROPATHY
     Dosage: FOR 2 YEARS
     Route: 042

REACTIONS (1)
  - MYCOBACTERIUM MARINUM INFECTION [None]
